FAERS Safety Report 6730887-9 (Version None)
Quarter: 2010Q2

REPORT INFORMATION
  Report Type: 
  Country: None (occurrence: None)
  Receive Date: 20100518
  Receipt Date: 20100506
  Transmission Date: 20101027
  Serious: Yes (Other)
  Sender: FDA-Public Use
  Company Number: PHHY2010BR29358

PATIENT

DRUGS (2)
  1. GLEEVEC [Suspect]
     Indication: CHRONIC MYELOID LEUKAEMIA
     Dosage: 600 MG DAILY
     Dates: start: 20060725
  2. GLEEVEC [Suspect]
     Dosage: 400 MG DAILY
     Dates: start: 20100101

REACTIONS (4)
  - BREAST CANCER [None]
  - CONJUNCTIVAL HAEMORRHAGE [None]
  - NEOPLASM MALIGNANT [None]
  - PANCYTOPENIA [None]
